FAERS Safety Report 6423719-X (Version None)
Quarter: 2009Q4

REPORT INFORMATION
  Report Type: 
  Country: None (occurrence: None)
  Receive Date: 20091102
  Receipt Date: 20091027
  Transmission Date: 20100525
  Serious: Yes (Hospitalization)
  Sender: FDA-Public Use
  Company Number: FR-WYE-G04733909

PATIENT
  Age: 5 Year
  Sex: Male

DRUGS (1)
  1. ADVIL ENFANTS ET NOURRISSONS [Suspect]
     Dosage: OVERDOSE AMOUNT : HALF OF THE BOTTLE AT LEAST
     Route: 048
     Dates: start: 20000101, end: 20000101

REACTIONS (7)
  - ACCIDENTAL DRUG INTAKE BY CHILD [None]
  - ACCIDENTAL OVERDOSE [None]
  - APATHY [None]
  - ATAXIA [None]
  - DIZZINESS [None]
  - FATIGUE [None]
  - VERTIGO [None]
